FAERS Safety Report 5332814-8 (Version None)
Quarter: 2007Q2

REPORT INFORMATION
  Report Type: 
  Country: None (occurrence: None)
  Receive Date: 20070521
  Receipt Date: 20070511
  Transmission Date: 20071010
  Serious: Yes (Life-Threatening)
  Sender: FDA-Public Use
  Company Number: E2020-01174-SPO-JP

PATIENT
  Age: 89 Year
  Sex: Male

DRUGS (5)
  1. ARICEPT [Suspect]
     Indication: DEMENTIA ALZHEIMER'S TYPE
     Dosage: 5 MG, 1 IN 1 D, ORAL
     Route: 048
     Dates: start: 20041101, end: 20070407
  2. LISINOPRIL [Concomitant]
  3. FERROMIA (FERROUS CITRATE) [Concomitant]
  4. KARIKUROMONE S (KALLIDINOGENASE) [Concomitant]
  5. CEROCRAL (IFENPRODIL TARTRATE) [Concomitant]

REACTIONS (9)
  - BEDRIDDEN [None]
  - BLOOD AMYLASE INCREASED [None]
  - BLOOD UREA INCREASED [None]
  - DEPRESSED LEVEL OF CONSCIOUSNESS [None]
  - DISSEMINATED INTRAVASCULAR COAGULATION [None]
  - GASTRIC ULCER HAEMORRHAGE [None]
  - LIVER DISORDER [None]
  - ORAL INTAKE REDUCED [None]
  - RHABDOMYOLYSIS [None]
